FAERS Safety Report 17376447 (Version 1)
Quarter: 2020Q1

REPORT INFORMATION
  Report Type: Spontaneous
  Country: PT (occurrence: PT)
  Receive Date: 20200206
  Receipt Date: 20200206
  Transmission Date: 20200409
  Serious: Yes (Other)
  Sender: FDA-Public Use
  Company Number: PT-TEVA-2019-PT-1123536

PATIENT
  Age: 66 Year
  Sex: Male

DRUGS (4)
  1. NEBILET [Concomitant]
     Active Substance: NEBIVOLOL
     Route: 048
  2. ATORVASTATINA RATIOPHARM [Suspect]
     Active Substance: ATORVASTATIN CALCIUM
     Indication: HYPERCHOLESTEROLAEMIA
     Route: 048
     Dates: start: 20190912
  3. ZOLNOR [Concomitant]
     Active Substance: AMLODIPINE BESYLATE\OLMESARTAN MEDOXOMIL
     Route: 048
  4. ALLOPURINOL. [Concomitant]
     Active Substance: ALLOPURINOL
     Route: 048

REACTIONS (3)
  - Erectile dysfunction [Unknown]
  - Libido decreased [Unknown]
  - Musculoskeletal chest pain [Recovered/Resolved]

NARRATIVE: CASE EVENT DATE: 20190920
